FAERS Safety Report 7071437-X (Version None)
Quarter: 2010Q4

REPORT INFORMATION
  Report Type: 
  Country: None (occurrence: None)
  Receive Date: 20101029
  Receipt Date: 20090901
  Transmission Date: 20110411
  Serious: No
  Sender: FDA-Public Use
  Company Number: A0805370A

PATIENT
  Age: 66 Year
  Sex: Female

DRUGS (2)
  1. ADVAIR DISKUS 100/50 [Suspect]
     Indication: CHRONIC OBSTRUCTIVE PULMONARY DISEASE
     Dosage: 1PUFF TWICE PER DAY
     Route: 055
     Dates: start: 20060601, end: 20070101
  2. ATROVENT [Concomitant]

REACTIONS (2)
  - BONE PAIN [None]
  - NASOPHARYNGITIS [None]
